FAERS Safety Report 7480061-6 (Version None)
Quarter: 2011Q2

REPORT INFORMATION
  Report Type: 
  Country: None (occurrence: None)
  Receive Date: 20110516
  Receipt Date: 20110506
  Transmission Date: 20111010
  Serious: No
  Sender: FDA-Public Use
  Company Number: US-BIOGENIDEC-2011BI008527

PATIENT
  Sex: Female

DRUGS (4)
  1. TYSABRI [Suspect]
     Route: 042
     Dates: start: 20050128
  2. AVONEX [Concomitant]
     Indication: MULTIPLE SCLEROSIS
     Route: 030
     Dates: start: 20040526
  3. AVONEX [Concomitant]
     Route: 030
     Dates: start: 20020517
  4. TYSABRI [Suspect]
     Indication: MULTIPLE SCLEROSIS
     Route: 042
     Dates: start: 20070117

REACTIONS (6)
  - VOCAL CORD POLYPECTOMY [None]
  - HYPOAESTHESIA [None]
  - PARAESTHESIA [None]
  - POST PROCEDURAL COMPLICATION [None]
  - BACK PAIN [None]
  - ASTHENIA [None]
